FAERS Safety Report 12935013 (Version 1)
Quarter: 2016Q4

REPORT INFORMATION
  Report Type: Report from Study
  Country: QA (occurrence: QA)
  Receive Date: 20161113
  Receipt Date: 20161113
  Transmission Date: 20170207
  Serious: Yes (Hospitalization)
  Sender: FDA-Public Use
  Company Number: QA-ROCHE-1852857

PATIENT
  Age: 70 Year
  Sex: Female

DRUGS (4)
  1. APROVEL [Concomitant]
     Active Substance: IRBESARTAN
     Route: 048
  2. DIGOXINE [Concomitant]
     Active Substance: DIGOXIN
     Route: 065
  3. BEVACIZUMAB [Suspect]
     Active Substance: BEVACIZUMAB
     Indication: OVARIAN CANCER
     Dosage: MOST RECENT DOSE PRIOR TO SAE : 29/SEP/2016
     Route: 065
     Dates: start: 20150916
  4. BLINDED OLAPARIB [Suspect]
     Active Substance: OLAPARIB
     Indication: OVARIAN CANCER
     Dosage: MOST RECENT DOSE PRIOR TO SAE : 27/OCT/2016
     Route: 048
     Dates: start: 20150917

REACTIONS (1)
  - Atrial fibrillation [Not Recovered/Not Resolved]

NARRATIVE: CASE EVENT DATE: 20161028
